FAERS Safety Report 24650479 (Version 1)
Quarter: 2024Q4

REPORT INFORMATION
  Report Type: Spontaneous
  Country: US (occurrence: US)
  Receive Date: 20241122
  Receipt Date: 20241122
  Transmission Date: 20250115
  Serious: Yes (Other)
  Sender: EPIC PHARM
  Company Number: US-EPICPHARMA-US-2024EPCSPO01463

PATIENT

DRUGS (1)
  1. DEXTROAMPHETAMINE SACCHARATE, AMPHETAMINE ASPARTATE, DEXTROAMPHETAMINE [Suspect]
     Active Substance: DEXTROAMPHETAMINE SACCHARATE, AMPHETAMINE ASPARTATE, DEXTROAMPHETAMINE SULFATE AND AMPHETAMINE SULFA
     Indication: Product used for unknown indication
     Route: 065

REACTIONS (12)
  - Suicidal ideation [Unknown]
  - Headache [Unknown]
  - Brain fog [Unknown]
  - Dizziness [Unknown]
  - Sleep disorder [Unknown]
  - Malaise [Unknown]
  - Discomfort [Unknown]
  - Musculoskeletal stiffness [Unknown]
  - Nausea [Unknown]
  - Depression [Unknown]
  - Therapeutic response changed [Unknown]
  - Product substitution issue [Unknown]
